FAERS Safety Report 6444643-2 (Version None)
Quarter: 2009Q4

REPORT INFORMATION
  Report Type: 
  Country: None (occurrence: None)
  Receive Date: 20091116
  Receipt Date: 20091116
  Transmission Date: 20100525
  Serious: Yes (Other)
  Sender: FDA-Public Use
  Company Number: None

PATIENT
  Age: 39 Year
  Sex: Female
  Weight: 110.2241 kg

DRUGS (1)
  1. INFED [Suspect]
     Indication: IRON DEFICIENCY ANAEMIA
     Dosage: ONE GM - IVSS
     Route: 042
     Dates: start: 20091111

REACTIONS (4)
  - INFUSION RELATED REACTION [None]
  - PARAESTHESIA [None]
  - PHARYNGEAL DISORDER [None]
  - THROAT IRRITATION [None]
